FAERS Safety Report 8549119-4 (Version None)
Quarter: 2012Q3

REPORT INFORMATION
  Report Type: 
  Country: None (occurrence: None)
  Receive Date: 20120730
  Receipt Date: 20120725
  Transmission Date: 20120928
  Serious: Yes (Other)
  Sender: FDA-Public Use
  Company Number: US-PFIZER INC-2012028782

PATIENT
  Sex: Male
  Weight: 68.027 kg

DRUGS (3)
  1. AMBIEN [Concomitant]
     Dosage: 10 MG, AS NEEDED
  2. CHANTIX [Suspect]
     Indication: SMOKING CESSATION THERAPY
     Dosage: 0.5 MG, DAILY
     Route: 048
     Dates: start: 20111220, end: 20120101
  3. CHANTIX [Suspect]
     Indication: TOBACCO ABUSE
     Dosage: 1 MG, 2X/DAY
     Route: 048
     Dates: start: 20120101, end: 20120126

REACTIONS (6)
  - DEPRESSION [None]
  - AGGRESSION [None]
  - ABDOMINAL PAIN UPPER [None]
  - ALCOHOL USE [None]
  - DRUG INTOLERANCE [None]
  - NAUSEA [None]
